FAERS Safety Report 4702359-4 (Version None)
Quarter: 2005Q2

REPORT INFORMATION
  Report Type: 
  Country: None (occurrence: None)
  Receive Date: 20050629
  Receipt Date: 20041001
  Transmission Date: 20051028
  Serious: No
  Sender: FDA-Public Use
  Company Number: US-GLAXOSMITHKLINE-A0528457A

PATIENT
  Age: 58 Year
  Sex: Female

DRUGS (6)
  1. ALBUTEROL [Suspect]
     Indication: ASTHMA
  2. BECONASE [Suspect]
     Indication: SINUS DISORDER
  3. DETROL [Concomitant]
     Indication: BLADDER DISORDER
  4. LOTENSIN [Concomitant]
     Indication: HYPERTENSION
  5. MORPHINE [Concomitant]
     Indication: PAIN
  6. VICODIN [Concomitant]
     Indication: PAIN

REACTIONS (3)
  - BLOOD PRESSURE INCREASED [None]
  - DYSPNOEA [None]
  - OXYGEN SATURATION DECREASED [None]
